FAERS Safety Report 23798537 (Version 1)
Quarter: 2024Q2

REPORT INFORMATION
  Report Type: Spontaneous
  Country: CA (occurrence: CA)
  Receive Date: 20240430
  Receipt Date: 20240430
  Transmission Date: 20240716
  Serious: Yes (Other)
  Sender: FDA-Public Use
  Company Number: CA-PFIZER INC-202400096824

PATIENT
  Age: 18 Year
  Sex: Female
  Weight: 90.703 kg

DRUGS (4)
  1. METHOTREXATE SODIUM [Suspect]
     Active Substance: METHOTREXATE SODIUM
     Dosage: 1 DF, WEEKLY, DOSAGE INFO: UNKNOWN. DISCONTINUED
     Route: 058
     Dates: end: 202310
  2. ADVIL [Concomitant]
     Active Substance: IBUPROFEN
     Dosage: 400 MG, DAILY
     Route: 048
  3. NAPROXEN [Concomitant]
     Active Substance: NAPROXEN
     Dosage: 500 MG, 2X/DAY, 4 MONTHS
     Route: 048
     Dates: start: 202210, end: 202302
  4. OZEMPIC [Concomitant]
     Active Substance: SEMAGLUTIDE
     Dosage: UNK, WEEKLY

REACTIONS (2)
  - Gastrointestinal disorder [Unknown]
  - Off label use [Unknown]
